FAERS Safety Report 8882388 (Version 2)
Quarter: 2013Q1

REPORT INFORMATION
  Report Type: Spontaneous
  Country: US (occurrence: US)
  Receive Date: 20121103
  Receipt Date: 20130115
  Transmission Date: 20140127
  Serious: No
  Sender: FDA-Public Use
  Company Number: US-009507513-1210USA013099

PATIENT
  Age: 27 Year
  Sex: Female
  Weight: 59.41 kg

DRUGS (5)
  1. NEXPLANON [Suspect]
     Indication: CONTRACEPTION
     Dosage: 1 DF, EVERY 3 YEARS
     Route: 059
     Dates: start: 20121023
  2. TOPAMAX [Concomitant]
  3. METHYLPHENIDATE [Concomitant]
  4. DIFFERIN [Concomitant]
  5. BENZACLIN [Concomitant]

REACTIONS (3)
  - Implant site scar [Recovered/Resolved]
  - Device difficult to use [Unknown]
  - Medical device complication [Unknown]
